FAERS Safety Report 23298681 (Version 1)
Quarter: 2023Q4

REPORT INFORMATION
  Report Type: Spontaneous
  Country: FR (occurrence: FR)
  Receive Date: 20231214
  Receipt Date: 20231214
  Transmission Date: 20240110
  Serious: Yes (Congenital Anomaly)
  Sender: FDA-Public Use
  Company Number: FR-AMGEN-FRASP2023219516

PATIENT

DRUGS (1)
  1. ADALIMUMAB [Suspect]
     Active Substance: ADALIMUMAB\ISOPROPYL ALCOHOL
     Indication: Exposure during pregnancy
     Dosage: UNK
     Route: 050

REACTIONS (2)
  - Hypoplastic left heart syndrome [Not Recovered/Not Resolved]
  - Skeletal dysplasia [Not Recovered/Not Resolved]

NARRATIVE: CASE EVENT DATE: 20231121
